FAERS Safety Report 21417299 (Version 5)
Quarter: 2023Q1

REPORT INFORMATION
  Report Type: Report from Study
  Country: US (occurrence: US)
  Receive Date: 20221006
  Receipt Date: 20230113
  Transmission Date: 20230417
  Serious: No
  Sender: FDA-Public Use
  Company Number: US-ABBVIE-22K-163-4427778-00

PATIENT
  Sex: Male

DRUGS (11)
  1. IMBRUVICA [Suspect]
     Active Substance: IBRUTINIB
     Indication: Chronic lymphocytic leukaemia
     Route: 048
     Dates: start: 202109
  2. IMBRUVICA [Suspect]
     Active Substance: IBRUTINIB
     Indication: Chronic lymphocytic leukaemia
     Route: 048
     Dates: start: 202110
  3. IMBRUVICA [Suspect]
     Active Substance: IBRUTINIB
     Indication: Chronic lymphocytic leukaemia
     Route: 048
     Dates: start: 20211002
  4. IMBRUVICA [Suspect]
     Active Substance: IBRUTINIB
     Indication: Chronic lymphocytic leukaemia
     Route: 048
  5. PFIZER-BIONTECH COVID-19 VACCINE [Concomitant]
     Active Substance: TOZINAMERAN
     Indication: COVID-19 immunisation
     Route: 030
  6. PFIZER-BIONTECH COVID-19 VACCINE [Concomitant]
     Active Substance: TOZINAMERAN
     Indication: COVID-19 immunisation
     Route: 030
  7. PFIZER-BIONTECH COVID-19 VACCINE [Concomitant]
     Active Substance: TOZINAMERAN
     Indication: COVID-19 immunisation
     Dosage: 1 IN ONCE
     Route: 030
  8. SYMBICORT [Concomitant]
     Active Substance: BUDESONIDE\FORMOTEROL FUMARATE DIHYDRATE
     Indication: Product used for unknown indication
     Route: 065
  9. MODERNA COVID-19 VACCINE [Concomitant]
     Active Substance: ELASOMERAN
     Indication: COVID-19 immunisation
     Dosage: 1ST DOSE, ONE IN ONCE
     Route: 030
  10. MODERNA COVID-19 VACCINE [Concomitant]
     Active Substance: ELASOMERAN
     Indication: COVID-19 immunisation
     Dosage: 2ND DOSE, ONE IN ONCE
     Route: 030
  11. MODERNA COVID-19 VACCINE [Concomitant]
     Active Substance: ELASOMERAN
     Indication: COVID-19 immunisation
     Dosage: BOOSTER DOSE?1 IN ONCE
     Route: 030

REACTIONS (24)
  - Wheezing [Unknown]
  - Dysstasia [Unknown]
  - Emotional disorder [Unknown]
  - Skin laceration [Unknown]
  - Neuralgia [Recovered/Resolved]
  - Chest pain [Recovered/Resolved]
  - Renal pain [Recovered/Resolved]
  - Dyspnoea [Unknown]
  - Cough [Unknown]
  - Pain [Unknown]
  - Blood urine present [Unknown]
  - Productive cough [Unknown]
  - Hypertension [Unknown]
  - Dyspepsia [Unknown]
  - Unevaluable event [Unknown]
  - Fatigue [Unknown]
  - Increased tendency to bruise [Unknown]
  - Insomnia [Unknown]
  - Pain in extremity [Unknown]
  - Myalgia [Unknown]
  - Muscle spasms [Unknown]
  - Hyperkeratosis [Unknown]
  - Blood cholesterol increased [Unknown]
  - Discharge [Unknown]
